FAERS Safety Report 12680279 (Version 3)
Quarter: 2017Q3

REPORT INFORMATION
  Report Type: Spontaneous
  Country: US (occurrence: US)
  Receive Date: 20160824
  Receipt Date: 20170710
  Transmission Date: 20171127
  Serious: Yes (Death, Hospitalization, Other)
  Sender: FDA-Public Use
  Company Number: US-PFIZER INC-2016392530

PATIENT
  Age: 81 Year
  Sex: Male
  Weight: 84.37 kg

DRUGS (4)
  1. LANTUS [Concomitant]
     Active Substance: INSULIN GLARGINE
     Indication: DIABETES MELLITUS
     Dosage: UNK UNK, 1X/DAY (6-7 UNITS ONCE A DAY)
  2. METFORMIN [Concomitant]
     Active Substance: METFORMIN HYDROCHLORIDE
     Dosage: UNK
  3. INLYTA [Suspect]
     Active Substance: AXITINIB
     Indication: RENAL CANCER STAGE IV
     Dosage: 5 MG TABLETS BY MOUTH TWICE A DAY
     Route: 048
     Dates: start: 20160720, end: 20160729
  4. INLYTA [Suspect]
     Active Substance: AXITINIB
     Dosage: 1 MG, 2X/DAY
     Route: 048

REACTIONS (11)
  - Dizziness [Recovered/Resolved]
  - Neck injury [Fatal]
  - Rib fracture [Fatal]
  - Weight decreased [Unknown]
  - Road traffic accident [Fatal]
  - Head injury [Recovered/Resolved]
  - Back injury [Fatal]
  - Blood test abnormal [Recovered/Resolved]
  - Injury [Fatal]
  - Loss of consciousness [Recovered/Resolved]
  - Laceration [Recovered/Resolved]

NARRATIVE: CASE EVENT DATE: 201607
